FAERS Safety Report 4341318-0 (Version None)
Quarter: 2004Q1

REPORT INFORMATION
  Report Type: 
  Country: None (occurrence: None)
  Receive Date: 20040314
  Receipt Date: 20031126
  Transmission Date: 20041129
  Serious: Yes (Hospitalization)
  Sender: FDA-Public Use
  Company Number: 2003-BP-09975BP(0)

PATIENT

DRUGS (1)
  1. MOBIC [Suspect]
     Dosage: (7.5 MG, NR), PO
     Route: 048

REACTIONS (2)
  - HYPERTENSION [None]
  - OEDEMA [None]
